FAERS Safety Report 7457784-8 (Version None)
Quarter: 2011Q2

REPORT INFORMATION
  Report Type: 
  Country: None (occurrence: None)
  Receive Date: 20110504
  Receipt Date: 20110426
  Transmission Date: 20111010
  Serious: Yes (Death)
  Sender: FDA-Public Use
  Company Number: ES-CUBIST-2010S1000885

PATIENT
  Age: 80 Year
  Sex: Female
  Weight: 43 kg

DRUGS (2)
  1. CUBICIN [Suspect]
     Route: 042
     Dates: start: 20090427, end: 20090505
  2. CUBICIN [Suspect]
     Indication: MEDIASTINITIS
     Route: 042
     Dates: start: 20090427, end: 20090505

REACTIONS (2)
  - MEDIASTINITIS [None]
  - MULTI-ORGAN FAILURE [None]
